FAERS Safety Report 10246232 (Version 10)
Quarter: 2016Q4

REPORT INFORMATION
  Report Type: Report from Study
  Country: CA (occurrence: CA)
  Receive Date: 20140619
  Receipt Date: 20161003
  Transmission Date: 20170206
  Serious: Yes (Hospitalization, Other)
  Sender: FDA-Public Use
  Company Number: PHHY2014CA037291

PATIENT
  Sex: Male

DRUGS (7)
  1. GLEEVEC [Suspect]
     Active Substance: IMATINIB MESYLATE
     Dosage: 400 MG, QD
     Route: 048
  2. VENLAFAXINE [Concomitant]
     Active Substance: VENLAFAXINE HYDROCHLORIDE
     Indication: PRODUCT USED FOR UNKNOWN INDICATION
     Dosage: 250 MG
     Route: 065
  3. GLEEVEC [Suspect]
     Active Substance: IMATINIB MESYLATE
     Indication: GASTROINTESTINAL STROMAL TUMOUR
     Dosage: 400 MG, QD (ISSUED A SINGLE MONTH OF GLEEVEC IN OCT 2013)
     Route: 048
     Dates: start: 201310
  4. IMATINIB [Suspect]
     Active Substance: IMATINIB
     Indication: GASTROINTESTINAL STROMAL TUMOUR
     Dosage: UNK
     Route: 065
  5. GLEEVEC [Suspect]
     Active Substance: IMATINIB MESYLATE
     Dosage: UNK
     Route: 048
     Dates: start: 20140619
  6. GLEEVEC [Suspect]
     Active Substance: IMATINIB MESYLATE
     Dosage: 300 MG, QD
     Route: 048
     Dates: start: 20131215, end: 20140507
  7. CLONAZEPAM. [Concomitant]
     Active Substance: CLONAZEPAM
     Indication: PRODUCT USED FOR UNKNOWN INDICATION
     Dosage: QD (AM)
     Route: 065

REACTIONS (20)
  - Nasopharyngitis [Unknown]
  - Dyspepsia [Unknown]
  - Hypophagia [Not Recovered/Not Resolved]
  - Deafness bilateral [Unknown]
  - Weight decreased [Unknown]
  - Fatigue [Not Recovered/Not Resolved]
  - Dysphagia [Recovering/Resolving]
  - Personality change [Recovered/Resolved]
  - Headache [Recovering/Resolving]
  - Muscle atrophy [Unknown]
  - Contusion [Unknown]
  - Insomnia [Recovering/Resolving]
  - Pruritus [Recovered/Resolved]
  - Gastrooesophageal reflux disease [Not Recovered/Not Resolved]
  - Candida infection [Recovering/Resolving]
  - Rib fracture [Unknown]
  - Nausea [Not Recovered/Not Resolved]
  - Weight increased [Recovering/Resolving]
  - Sneezing [Unknown]
  - Pain [Recovering/Resolving]
